FAERS Safety Report 5614132-3 (Version None)
Quarter: 2008Q1

REPORT INFORMATION
  Report Type: 
  Country: None (occurrence: None)
  Receive Date: 20080205
  Receipt Date: 20080130
  Transmission Date: 20080703
  Serious: Yes (Other)
  Sender: FDA-Public Use
  Company Number: DE-PFIZER INC-2007047821

PATIENT
  Sex: Female

DRUGS (2)
  1. LYRICA [Suspect]
     Indication: NEURALGIA
     Dosage: DAILY DOSE:600MG
     Route: 048
  2. METOCLOPRAMIDE [Suspect]

REACTIONS (2)
  - AMENORRHOEA [None]
  - HYPERPROLACTINAEMIA [None]
